FAERS Safety Report 7320704-0 (Version None)
Quarter: 2011Q1

REPORT INFORMATION
  Report Type: 
  Country: None (occurrence: None)
  Receive Date: 20110228
  Receipt Date: 20110216
  Transmission Date: 20110831
  Serious: Yes (Death, Hospitalization, Disabling)
  Sender: FDA-Public Use
  Company Number: JP-PFIZER INC-2010177574

PATIENT
  Age: 77 Year
  Sex: Female

DRUGS (6)
  1. SENNOSIDE A+B [Concomitant]
     Dosage: UNK
     Route: 048
  2. PLAVIX [Concomitant]
     Dosage: UNK
     Route: 048
  3. MUCODYNE [Concomitant]
     Dosage: UNK
     Route: 048
     Dates: end: 20101203
  4. VILDAGLIPTIN [Suspect]
     Dosage: UNK
     Route: 048
     Dates: start: 20101126, end: 20101203
  5. SYMMETREL [Concomitant]
     Dosage: UNK
     Route: 048
     Dates: end: 20101203
  6. LIPITOR [Suspect]
     Dosage: 5 MG, 1X/DAY
     Route: 048
     Dates: start: 20101126, end: 20101203

REACTIONS (3)
  - GENERALISED ERYTHEMA [None]
  - PNEUMONIA [None]
  - TRACHEAL STENOSIS [None]
